FAERS Safety Report 9563169 (Version 1)
Quarter: 2013Q3

REPORT INFORMATION
  Report Type: Spontaneous
  Country: US (occurrence: US)
  Receive Date: 20130927
  Receipt Date: 20130927
  Transmission Date: 20140515
  Serious: No
  Sender: FDA-Public Use
  Company Number: US-BRISTOL-MYERS SQUIBB COMPANY-18760298

PATIENT
  Sex: Female
  Weight: 90.7 kg

DRUGS (2)
  1. ONGLYZA TABS [Suspect]
     Dosage: STARTD THERPAY OF ONGLYZA WITH 5MG ON UNK DATE AND 3 MG DOSE 3 WEEKS AGO.
  2. METFORMIN [Suspect]

REACTIONS (1)
  - Drug ineffective [Unknown]
